FAERS Safety Report 12535533 (Version 5)
Quarter: 2016Q3

REPORT INFORMATION
  Report Type: Spontaneous
  Country: DE (occurrence: DE)
  Receive Date: 20160707
  Receipt Date: 20160927
  Transmission Date: 20161109
  Serious: Yes (Life-Threatening, Hospitalization, Other)
  Sender: FDA-Public Use
  Company Number: DE-ROCHE-1789500

PATIENT
  Age: 59 Year
  Sex: Female
  Weight: 64 kg

DRUGS (6)
  1. XOLAIR [Suspect]
     Active Substance: OMALIZUMAB
     Indication: ASTHMA
     Dosage: 2 DF, (EVERY 14 DAYS)
     Route: 065
     Dates: start: 2001
  2. XOLAIR [Suspect]
     Active Substance: OMALIZUMAB
     Route: 065
     Dates: start: 20160624, end: 201607
  3. VIANI [Concomitant]
     Active Substance: FLUTICASONE PROPIONATE\SALMETEROL XINAFOATE
     Indication: ASTHMA
     Dosage: UNK, BID
     Route: 065
     Dates: start: 20160624
  4. XOLAIR [Suspect]
     Active Substance: OMALIZUMAB
     Dosage: UNK
     Route: 065
     Dates: start: 20150907
  5. VIANI [Concomitant]
     Active Substance: FLUTICASONE PROPIONATE\SALMETEROL XINAFOATE
     Indication: HYPERSENSITIVITY
     Route: 065
     Dates: start: 2001, end: 2016
  6. XOLAIR [Suspect]
     Active Substance: OMALIZUMAB
     Dosage: 2 DF, (EVERY 14 DAYS)
     Route: 065
     Dates: start: 20150907

REACTIONS (35)
  - Hyperhidrosis [Recovered/Resolved]
  - Sensation of foreign body [Recovered/Resolved]
  - Nasopharyngitis [Not Recovered/Not Resolved]
  - Abdominal pain upper [Recovered/Resolved]
  - Hypoaesthesia [Recovering/Resolving]
  - Influenza [Recovered/Resolved]
  - Weight decreased [Not Recovered/Not Resolved]
  - Bone pain [Unknown]
  - Throat irritation [Recovered/Resolved]
  - Oedema peripheral [Not Recovered/Not Resolved]
  - Constipation [Recovering/Resolving]
  - Swelling [Recovering/Resolving]
  - Rheumatic disorder [Recovered/Resolved]
  - Local swelling [Recovered/Resolved]
  - Swelling face [Recovered/Resolved]
  - Pharyngeal oedema [Recovering/Resolving]
  - Hypoaesthesia oral [Recovering/Resolving]
  - Abdominal pain upper [Not Recovered/Not Resolved]
  - Asthma [Recovering/Resolving]
  - Angioedema [Unknown]
  - Pyrexia [Recovered/Resolved]
  - Pain in extremity [Recovered/Resolved]
  - Dyspnoea [Recovered/Resolved]
  - Chest discomfort [Recovering/Resolving]
  - Joint swelling [Recovering/Resolving]
  - Hypersensitivity [Recovered/Resolved]
  - Musculoskeletal stiffness [Not Recovered/Not Resolved]
  - Dysphagia [Not Recovered/Not Resolved]
  - Menopause delayed [Not Recovered/Not Resolved]
  - Drug effect decreased [Unknown]
  - Muscle spasms [Not Recovered/Not Resolved]
  - Ligament rupture [Recovered/Resolved]
  - Fall [Unknown]
  - Dyskinesia oesophageal [Recovering/Resolving]
  - Bronchitis bacterial [Recovered/Resolved]

NARRATIVE: CASE EVENT DATE: 2006
